FAERS Safety Report 9275186 (Version 2)
Quarter: 2013Q2

REPORT INFORMATION
  Report Type: Spontaneous
  Country: SE (occurrence: SE)
  Receive Date: 20130507
  Receipt Date: 20130523
  Transmission Date: 20140414
  Serious: Yes (Other)
  Sender: FDA-Public Use
  Company Number: SE-PFIZER INC-2013135060

PATIENT
  Age: 67 Year
  Sex: Female

DRUGS (6)
  1. AROMASIN [Suspect]
     Indication: BREAST CANCER
     Dosage: UNK
     Dates: start: 20090129
  2. TROMBYL [Concomitant]
     Dosage: UNK
  3. OMEPRAZOLE [Concomitant]
     Dosage: UNK
  4. VITAMIN B12 [Concomitant]
     Dosage: UNK
  5. SIMVASTATIN [Concomitant]
     Dosage: UNK
  6. ALLOPURINOL [Concomitant]
     Dosage: UNK

REACTIONS (14)
  - Cerebrovascular accident [Unknown]
  - Inflammatory bowel disease [Unknown]
  - Gamma-glutamyltransferase increased [Unknown]
  - Local swelling [Not Recovered/Not Resolved]
  - Pain in extremity [Unknown]
  - Joint swelling [Not Recovered/Not Resolved]
  - Arthritis [Not Recovered/Not Resolved]
  - Skin ulcer [Unknown]
  - Gait disturbance [Not Recovered/Not Resolved]
  - Blood uric acid increased [Unknown]
  - Serum ferritin increased [Unknown]
  - Blood test abnormal [Unknown]
  - C-reactive protein increased [Not Recovered/Not Resolved]
  - Abdominal pain [Not Recovered/Not Resolved]
